FAERS Safety Report 18666908 (Version 1)
Quarter: 2020Q4

REPORT INFORMATION
  Report Type: Spontaneous
  Country: US (occurrence: US)
  Receive Date: 20201228
  Receipt Date: 20201228
  Transmission Date: 20210114
  Serious: Yes (Other)
  Sender: FDA-Public Use
  Company Number: US-DRREDDYS-USA/USA/20/0130420

PATIENT
  Sex: Male

DRUGS (2)
  1. RANITIDINE CAPSULES [Suspect]
     Active Substance: RANITIDINE
     Indication: PRODUCT USED FOR UNKNOWN INDICATION
     Route: 048
     Dates: start: 200808, end: 201912
  2. RANITIDINE CAPSULES [Suspect]
     Active Substance: RANITIDINE
     Route: 048
     Dates: start: 200808, end: 201912

REACTIONS (1)
  - Prostate cancer [Unknown]

NARRATIVE: CASE EVENT DATE: 201812
